FAERS Safety Report 7460692-X (Version None)
Quarter: 2011Q2

REPORT INFORMATION
  Report Type: 
  Country: None (occurrence: None)
  Receive Date: 20110505
  Receipt Date: 20110425
  Transmission Date: 20111010
  Serious: Yes (Other)
  Sender: FDA-Public Use
  Company Number: CN-ASTRAZENECA-2011SE23430

PATIENT
  Age: 59 Year
  Sex: Male
  Weight: 85 kg

DRUGS (2)
  1. APROVEL [Concomitant]
     Indication: HYPERTENSION
     Route: 048
     Dates: start: 20081201, end: 20110406
  2. PLENDIL [Suspect]
     Indication: HYPERTENSION
     Route: 048
     Dates: start: 20110320, end: 20110425

REACTIONS (1)
  - ATRIOVENTRICULAR BLOCK COMPLETE [None]
